FAERS Safety Report 18952959 (Version 1)
Quarter: 2021Q1

REPORT INFORMATION
  Report Type: Spontaneous
  Country: CN (occurrence: CN)
  Receive Date: 20210301
  Receipt Date: 20210301
  Transmission Date: 20210420
  Serious: Yes (Other)
  Sender: FDA-Public Use
  Company Number: CN-BEIGENE-BGN-2021-000486

PATIENT

DRUGS (1)
  1. BRUKINSA [Suspect]
     Active Substance: ZANUBRUTINIB
     Indication: DIFFUSE LARGE B-CELL LYMPHOMA
     Dosage: 160 MILLIGRAM, BID
     Route: 048
     Dates: start: 202011

REACTIONS (3)
  - Neoplasm progression [Unknown]
  - Drug resistance [Unknown]
  - Off label use [Unknown]

NARRATIVE: CASE EVENT DATE: 202011
